FAERS Safety Report 24788902 (Version 1)
Quarter: 2024Q4

REPORT INFORMATION
  Report Type: Spontaneous
  Country: CN (occurrence: CN)
  Receive Date: 20241230
  Receipt Date: 20241230
  Transmission Date: 20250115
  Serious: Yes (Hospitalization, Other)
  Sender: ORGANON
  Company Number: CN-ORGANON-O2412CHN001985

PATIENT
  Age: 36 Year
  Sex: Female
  Weight: 75.8 kg

DRUGS (4)
  1. ORGALUTRAN [Suspect]
     Active Substance: GANIRELIX ACETATE
     Indication: Ovulation induction
     Dosage: SUBCUTANEOUS INJECTION, 0.25MG, QD|
     Route: 058
     Dates: start: 20241129, end: 20241203
  2. FOLLITROPIN BETA [Suspect]
     Active Substance: FOLLITROPIN BETA
     Indication: Ovulation induction
     Dosage: SUBCUTANEOUS INJECTION, 150IU, QD
     Route: 058
     Dates: start: 20241125, end: 20241130
  3. FOLLITROPIN BETA [Suspect]
     Active Substance: FOLLITROPIN BETA
     Dosage: SUBCUTANEOUS INJECTION, 100IU, QD
     Route: 058
     Dates: start: 20241203, end: 20241203
  4. OVIDREL [Suspect]
     Active Substance: CHORIOGONADOTROPIN ALFA
     Indication: Ovulation induction
     Dosage: SUBCUTANEOUS INJECTION, 500UG, QD (RECOMBINANT HUMAN)
     Route: 058
     Dates: start: 20241203, end: 20241203

REACTIONS (8)
  - Ovarian hyperstimulation syndrome [Recovering/Resolving]
  - Ascites [Recovering/Resolving]
  - Abdominal pain lower [Recovering/Resolving]
  - Abdominal distension [Recovering/Resolving]
  - Cold sweat [Unknown]
  - Chest discomfort [Unknown]
  - Pleural effusion [Not Recovered/Not Resolved]
  - Pelvic fluid collection [Recovering/Resolving]

NARRATIVE: CASE EVENT DATE: 20241205
